FAERS Safety Report 24653208 (Version 1)
Quarter: 2024Q4

REPORT INFORMATION
  Report Type: Spontaneous
  Country: US (occurrence: US)
  Receive Date: 20241122
  Receipt Date: 20241122
  Transmission Date: 20250115
  Serious: No
  Sender: INTERCHEM
  Company Number: 2024-0015926

PATIENT
  Sex: Male

DRUGS (1)
  1. CALCIUM GLUCONATE [Suspect]
     Active Substance: CALCIUM GLUCONATE
     Indication: Hypocalcaemia
     Dosage: 1000 MG PER 50 ML
     Route: 065

REACTIONS (1)
  - Product administration error [Not Recovered/Not Resolved]
